FAERS Safety Report 6414611-5 (Version None)
Quarter: 2009Q4

REPORT INFORMATION
  Report Type: 
  Country: None (occurrence: None)
  Receive Date: 20091026
  Receipt Date: 20091012
  Transmission Date: 20100525
  Serious: Yes (Other)
  Sender: FDA-Public Use
  Company Number: US-PFIZER INC-2009287378

PATIENT
  Age: 70 Year
  Sex: Male

DRUGS (29)
  1. MORPHINE SULFATE [Suspect]
  2. DEXAMETHASONE [Suspect]
  3. THALIDOMIDE [Suspect]
  4. MELOXICAM [Suspect]
  5. PAMIDRONIC ACID [Suspect]
  6. CEFEPIME [Suspect]
  7. VANCOMYCIN [Suspect]
  8. FLUCONAZOLE [Suspect]
  9. NALOXONE [Suspect]
  10. PARACETAMOL [Suspect]
  11. PANTOPRAZOLE [Suspect]
  12. DIPHENHYDRAMINE [Suspect]
  13. HEPARIN SODIUM [Suspect]
  14. ZOLPIDEM [Suspect]
  15. AMIODARONE [Suspect]
  16. ALPRAZOLAM [Suspect]
  17. FILGRASTIM [Suspect]
  18. ENOXAPARIN SODIUM [Suspect]
  19. MEROPENEM [Suspect]
  20. DAPTOMYCIN [Suspect]
  21. TOBRAMYCIN SULFATE [Suspect]
  22. CASPOFUNGIN [Suspect]
  23. OMEPRAZOLE [Suspect]
  24. PROMETHAZINE HCL [Suspect]
  25. LIDOCAINE 2% [Suspect]
  26. PEG 3350 AND ELECTROLYTES FOR ORAL SOLUTION [Suspect]
  27. TESTOSTERONE CIPIONATE [Suspect]
  28. RANITIDINE [Suspect]
  29. HYDROCODONE [Suspect]

REACTIONS (2)
  - ACUTE GENERALISED EXANTHEMATOUS PUSTULOSIS [None]
  - ATRIAL FIBRILLATION [None]
